FAERS Safety Report 6579913-0 (Version None)
Quarter: 2010Q1

REPORT INFORMATION
  Report Type: 
  Country: None (occurrence: None)
  Receive Date: 20100212
  Receipt Date: 20100204
  Transmission Date: 20100710
  Serious: Yes (Hospitalization)
  Sender: FDA-Public Use
  Company Number: GXKR2010TW00622

PATIENT
  Age: 45 Year
  Sex: Male

DRUGS (5)
  1. ACETYLSALICYLIC ACID SRT [Suspect]
     Indication: STENT PLACEMENT
     Dosage: 100 MG, QD
     Route: 048
  2. CLOPIDOGREL [Suspect]
     Indication: STENT PLACEMENT
     Dosage: 75 MG, QD
     Route: 065
  3. BISOPROLOL [Concomitant]
     Dosage: 2.5 MG, QD
     Route: 065
  4. NICORANDIL [Concomitant]
     Dosage: 10 MG, QD
     Route: 065
  5. PRAVASTATIN [Concomitant]
     Dosage: 20 MG, UNK
     Route: 065

REACTIONS (9)
  - ASTHENIA [None]
  - BRAIN OEDEMA [None]
  - CRANIOTOMY [None]
  - HEADACHE [None]
  - HEMIPLEGIA [None]
  - HYPOAESTHESIA [None]
  - NAUSEA [None]
  - SUBDURAL HAEMATOMA [None]
  - VOMITING [None]
